FAERS Safety Report 13034079 (Version 1)
Quarter: 2016Q4

REPORT INFORMATION
  Report Type: Spontaneous
  Country: US (occurrence: US)
  Receive Date: 20161216
  Receipt Date: 20161216
  Transmission Date: 20170207
  Serious: No
  Sender: FDA-Public Use
  Company Number: US-ENDO PHARMACEUTICALS INC.-2016-006128

PATIENT
  Sex: Female

DRUGS (1)
  1. RHEUMATREX [Suspect]
     Active Substance: METHOTREXATE SODIUM
     Indication: PROPHYLAXIS
     Dosage: HIGHEST DOSE FOR HER WEIGHT CLASS
     Route: 048
     Dates: start: 201601, end: 201605

REACTIONS (6)
  - Vomiting [Unknown]
  - Mobility decreased [Unknown]
  - Malaise [Unknown]
  - Asthenia [Unknown]
  - Depressed mood [Unknown]
  - Feeding disorder [Unknown]

NARRATIVE: CASE EVENT DATE: 2016
